FAERS Safety Report 9596343 (Version 1)
Quarter: 2013Q4

REPORT INFORMATION
  Report Type: Spontaneous
  Country: US (occurrence: US)
  Receive Date: 20131004
  Receipt Date: 20131004
  Transmission Date: 20140711
  Serious: No
  Sender: FDA-Public Use
  Company Number: US-VIIV HEALTHCARE LIMITED-A0993513A

PATIENT
  Age: 54 Year
  Sex: Male

DRUGS (2)
  1. SELZENTRY [Suspect]
     Indication: HIV INFECTION
     Dosage: 300 PER DAY
     Route: 048
     Dates: start: 201208
  2. CONCURRENT MEDICATIONS [Concomitant]

REACTIONS (1)
  - Rash [Not Recovered/Not Resolved]
